FAERS Safety Report 4618213-2 (Version None)
Quarter: 2005Q1

REPORT INFORMATION
  Report Type: 
  Country: None (occurrence: None)
  Receive Date: 20050323
  Receipt Date: 20050314
  Transmission Date: 20050727
  Serious: Yes (Hospitalization)
  Sender: FDA-Public Use
  Company Number: 200502147

PATIENT
  Age: 25 Year
  Sex: Female

DRUGS (1)
  1. ALESION (EPINASTINE) [Suspect]
     Indication: DERMATITIS ALLERGIC
     Dosage: MG
     Dates: start: 20050201, end: 20050301

REACTIONS (1)
  - MELAENA [None]
